FAERS Safety Report 13936893 (Version 2)
Quarter: 2017Q4

REPORT INFORMATION
  Report Type: Spontaneous
  Country: US (occurrence: US)
  Receive Date: 20170905
  Receipt Date: 20171004
  Transmission Date: 20180320
  Serious: Yes (Other)
  Sender: FDA-Public Use
  Company Number: US-AKORN PHARMACEUTICALS-2017AKN01057

PATIENT
  Sex: Male
  Weight: 65.31 kg

DRUGS (3)
  1. TYLENOL [Suspect]
     Active Substance: ACETAMINOPHEN
     Dosage: 20 DOSAGE UNITS, ONCE
     Dates: start: 2017
  2. MYORISAN [Suspect]
     Active Substance: ISOTRETINOIN
     Indication: ACNE
     Dosage: 40 MG, 2X/DAY
     Dates: start: 20170317, end: 20170815
  3. LEXAPRO [Concomitant]
     Active Substance: ESCITALOPRAM OXALATE

REACTIONS (4)
  - Carbon dioxide increased [Unknown]
  - Lymphocyte count increased [Unknown]
  - Suicide attempt [Recovered/Resolved]
  - Blood albumin increased [Unknown]

NARRATIVE: CASE EVENT DATE: 2017
